FAERS Safety Report 19451149 (Version 1)
Quarter: 2021Q2

REPORT INFORMATION
  Report Type: Spontaneous
  Country: US (occurrence: US)
  Receive Date: 20210622
  Receipt Date: 20210622
  Transmission Date: 20210717
  Serious: Yes (Hospitalization)
  Sender: FDA-Public Use
  Company Number: None

PATIENT
  Age: 42 Year
  Sex: Male
  Weight: 138.6 kg

DRUGS (9)
  1. METOPROLOL TARTRATE. [Concomitant]
     Active Substance: METOPROLOL TARTRATE
  2. CARVEDILOL. [Concomitant]
     Active Substance: CARVEDILOL
  3. HYDROCHLOROTHIAZIDE. [Concomitant]
     Active Substance: HYDROCHLOROTHIAZIDE
  4. VITAMIN D [Concomitant]
     Active Substance: VITAMIN D NOS
  5. CORICIDIN (ACETAMINOPHEN/CHLORPHENIRAMINE) [Suspect]
     Active Substance: ACETAMINOPHEN\CHLORPHENIRAMINE
     Indication: HEADACHE
     Dosage: ?          QUANTITY:1 TABLET(S);?
     Route: 048
  6. AMLODIPINE?VALSARTAN [Concomitant]
     Active Substance: AMLODIPINE\VALSARTAN
  7. CHLORTHALIDONE. [Concomitant]
     Active Substance: CHLORTHALIDONE
  8. VITAMIN C [Concomitant]
     Active Substance: ASCORBIC ACID
  9. CORICIDIN (ACETAMINOPHEN/CHLORPHENIRAMINE) [Suspect]
     Active Substance: ACETAMINOPHEN\CHLORPHENIRAMINE
     Indication: COUGH
     Dosage: ?          QUANTITY:1 TABLET(S);?
     Route: 048

REACTIONS (4)
  - Dyspnoea [None]
  - Blood pressure decreased [None]
  - Heart rate increased [None]
  - Fatigue [None]

NARRATIVE: CASE EVENT DATE: 20210622
